FAERS Safety Report 19753446 (Version 1)
Quarter: 2021Q3

REPORT INFORMATION
  Report Type: Report from Study
  Country: US (occurrence: US)
  Receive Date: 20210827
  Receipt Date: 20210827
  Transmission Date: 20211014
  Serious: Yes (Life-Threatening, Hospitalization)
  Sender: FDA-Public Use
  Company Number: NVSC2021US192935

PATIENT
  Age: 77 Year
  Sex: Male

DRUGS (1)
  1. ENTRESTO [Suspect]
     Active Substance: SACUBITRIL\VALSARTAN
     Indication: PRODUCT USED FOR UNKNOWN INDICATION
     Dosage: 1 DF, BID(49/51MG)
     Route: 048
     Dates: start: 20210601, end: 20210815

REACTIONS (7)
  - Sepsis [Recovered/Resolved]
  - Hypotension [Recovered/Resolved]
  - Kidney infection [Recovered/Resolved]
  - Fatigue [Recovered/Resolved]
  - Renal impairment [Recovered/Resolved]
  - Dizziness [Recovered/Resolved]
  - Blood potassium increased [Recovered/Resolved]

NARRATIVE: CASE EVENT DATE: 20210815
